FAERS Safety Report 5940970-3 (Version None)
Quarter: 2008Q4

REPORT INFORMATION
  Report Type: 
  Country: None (occurrence: None)
  Receive Date: 20081104
  Receipt Date: 20081029
  Transmission Date: 20090506
  Serious: Yes (Other)
  Sender: FDA-Public Use
  Company Number: PHHY2008JP19351

PATIENT

DRUGS (1)
  1. COMTAN [Suspect]
     Indication: DRUG EFFECT DECREASED
     Dosage: 2 DF DAILY
     Route: 048

REACTIONS (1)
  - RED BLOOD CELL COUNT INCREASED [None]
